FAERS Safety Report 6299789-9 (Version None)
Quarter: 2009Q3

REPORT INFORMATION
  Report Type: 
  Country: None (occurrence: None)
  Receive Date: 20090806
  Receipt Date: 20090728
  Transmission Date: 20100115
  Serious: Yes (Hospitalization, Other)
  Sender: FDA-Public Use
  Company Number: US-TYCO HEALTHCARE/MALLINCKRODT-T200801005

PATIENT

DRUGS (16)
  1. OPTIMARK [Suspect]
     Indication: NUCLEAR MAGNETIC RESONANCE IMAGING BRAIN
     Route: 042
     Dates: start: 20050420, end: 20050420
  2. OPTIMARK [Suspect]
     Route: 042
     Dates: start: 20050705, end: 20050705
  3. OMNISCAN [Suspect]
     Indication: ANGIOGRAM
     Route: 042
     Dates: start: 20050825, end: 20050825
  4. OMNISCAN [Suspect]
     Indication: VENOGRAM RENAL
     Route: 042
     Dates: start: 20050830, end: 20050830
  5. OMNISCAN [Suspect]
     Indication: NUCLEAR MAGNETIC RESONANCE IMAGING
     Route: 042
     Dates: start: 20050901, end: 20050901
  6. OMNISCAN [Suspect]
     Route: 042
     Dates: start: 20050906, end: 20050906
  7. OMNISCAN [Suspect]
     Route: 042
     Dates: start: 20050908, end: 20050908
  8. OMNISCAN [Suspect]
     Route: 042
     Dates: start: 20050929, end: 20050929
  9. OMNISCAN [Suspect]
     Route: 042
     Dates: start: 20051001, end: 20051001
  10. OMNISCAN [Suspect]
     Route: 042
     Dates: start: 20051003, end: 20051003
  11. OMNISCAN [Suspect]
     Route: 042
     Dates: start: 20051018, end: 20051018
  12. OMNISCAN [Suspect]
     Route: 042
     Dates: start: 20051021, end: 20051021
  13. OMNISCAN [Suspect]
     Route: 042
     Dates: start: 20051103, end: 20051103
  14. MAGNEVIST [Suspect]
     Indication: NUCLEAR MAGNETIC RESONANCE IMAGING
     Route: 042
  15. MULTIHANCE [Suspect]
     Indication: NUCLEAR MAGNETIC RESONANCE IMAGING
     Route: 042
  16. PROHANCE [Suspect]
     Indication: NUCLEAR MAGNETIC RESONANCE IMAGING
     Route: 042

REACTIONS (15)
  - ACUTE MYOCARDIAL INFARCTION [None]
  - ALLERGIC GRANULOMATOUS ANGIITIS [None]
  - ALTERED VISUAL DEPTH PERCEPTION [None]
  - CEREBROVASCULAR ACCIDENT [None]
  - CLOSTRIDIUM DIFFICILE COLITIS [None]
  - CONFUSIONAL STATE [None]
  - INTERVERTEBRAL DISC DEGENERATION [None]
  - INTERVERTEBRAL DISC PROTRUSION [None]
  - NEPHROGENIC SYSTEMIC FIBROSIS [None]
  - PNEUMONIA [None]
  - PULMONARY HYPERTENSION [None]
  - PYREXIA [None]
  - RESTLESS LEGS SYNDROME [None]
  - STAPHYLOCOCCAL SEPSIS [None]
  - UPPER RESPIRATORY TRACT INFECTION [None]
